FAERS Safety Report 23003093 (Version 2)
Quarter: 2023Q4

REPORT INFORMATION
  Report Type: Spontaneous
  Country: US (occurrence: US)
  Receive Date: 20230928
  Receipt Date: 20231003
  Transmission Date: 20240110
  Serious: No
  Sender: FDA-Public Use
  Company Number: US-AMGEN-USASP2023171271

PATIENT
  Sex: Female
  Weight: 68.027 kg

DRUGS (1)
  1. AVSOLA [Suspect]
     Active Substance: INFLIXIMAB-AXXQ
     Indication: Hidradenitis
     Dosage: UNK UNK, Q6WK
     Route: 065

REACTIONS (1)
  - Off label use [Unknown]
